FAERS Safety Report 4386189-1 (Version None)
Quarter: 2004Q2

REPORT INFORMATION
  Report Type: 
  Country: None (occurrence: None)
  Receive Date: 20040629
  Receipt Date: 20021223
  Transmission Date: 20050107
  Serious: Yes (Hospitalization)
  Sender: FDA-Public Use
  Company Number: US-BRISTOL-MYERS SQUIBB COMPANY-12143707

PATIENT
  Age: 65 Year
  Sex: Female

DRUGS (6)
  1. BMS188667 [Concomitant]
     Dosage: -NINTH COURSE OF TREATMENT
     Route: 042
     Dates: start: 20020409, end: 20021211
  2. METHOTREXATE [Suspect]
     Route: 048
     Dates: start: 20001011, end: 20021223
  3. FOLIC ACID [Concomitant]
     Route: 048
     Dates: start: 19970101, end: 20030101
  4. NAPROXEN [Concomitant]
     Dosage: DOSE DECREASED IN JAN-2003 TO 500MG DAILY
     Dates: start: 19960101
  5. TRAMADOL [Concomitant]
     Dates: start: 19990101
  6. MOVELAT [Concomitant]
     Dates: start: 20020312

REACTIONS (2)
  - ARTHRITIS BACTERIAL [None]
  - STAPHYLOCOCCAL SEPSIS [None]
